FAERS Safety Report 17054007 (Version 3)
Quarter: 2021Q1

REPORT INFORMATION
  Report Type: Spontaneous
  Country: IN (occurrence: IN)
  Receive Date: 20191120
  Receipt Date: 20210322
  Transmission Date: 20210419
  Serious: Yes (Death, Hospitalization, Other)
  Sender: FDA-Public Use
  Company Number: IN-PFIZER INC-2019501627

PATIENT
  Age: 53 Year
  Sex: Female

DRUGS (5)
  1. PALBACE [Suspect]
     Active Substance: PALBOCICLIB
     Indication: BREAST CANCER METASTATIC
     Dosage: 125 MG, 1X/DAY
     Route: 048
     Dates: start: 20190701, end: 2019
  2. LETROZOLE. [Concomitant]
     Active Substance: LETROZOLE
     Dosage: 2.5 MG, DAILY
  3. BECOZINC [ASCORBIC ACID;CALCIUM PANTOTHENATE;FOLIC ACID;NICOTINAMIDE;P [Concomitant]
     Dosage: UNK
  4. SHELCAL CT [Concomitant]
     Dosage: UNK
  5. PALBACE [Suspect]
     Active Substance: PALBOCICLIB
     Dosage: 125 MG, 1X/DAY
     Route: 048
     Dates: start: 20190801

REACTIONS (7)
  - Thrombocytopenia [Recovering/Resolving]
  - Somnolence [Recovering/Resolving]
  - Haemoglobin decreased [Recovering/Resolving]
  - Asthenia [Recovering/Resolving]
  - Death [Fatal]
  - Altered state of consciousness [Recovering/Resolving]
  - Subdural haematoma [Recovering/Resolving]

NARRATIVE: CASE EVENT DATE: 2019
